FAERS Safety Report 9619851 (Version 2)
Quarter: 2013Q4

REPORT INFORMATION
  Report Type: Spontaneous
  Country: US (occurrence: US)
  Receive Date: 20131014
  Receipt Date: 20131014
  Transmission Date: 20140711
  Serious: Yes (Other)
  Sender: FDA-Public Use
  Company Number: US-ELI_LILLY_AND_COMPANY-US201305005825

PATIENT
  Sex: Male

DRUGS (1)
  1. EFFIENT [Suspect]
     Indication: STENT PLACEMENT
     Dosage: 10 MG, QD
     Dates: start: 20130220

REACTIONS (10)
  - Diabetes mellitus [Unknown]
  - Diarrhoea [Unknown]
  - Vision blurred [Unknown]
  - Abdominal pain [Unknown]
  - Lacrimation increased [Unknown]
  - Tooth disorder [Unknown]
  - Haemorrhage [Recovered/Resolved]
  - Cough [Recovered/Resolved]
  - Eye haemorrhage [Recovered/Resolved]
  - Haemorrhoidal haemorrhage [Recovered/Resolved]
